FAERS Safety Report 9804192 (Version 1)
Quarter: 2014Q1

REPORT INFORMATION
  Report Type: Spontaneous
  Country: US (occurrence: None)
  Receive Date: 20140106
  Receipt Date: 20140106
  Transmission Date: 20141002
  Serious: Yes (Other)
  Sender: FDA-Public Use
  Company Number: FK201400010

PATIENT
  Age: 77 Year
  Sex: Female

DRUGS (2)
  1. CARBOPLATIN (MANUFACTURER UNKNOWN) CARBOPLATIN) (CARBOPLATIN) [Suspect]
     Indication: PAPILLARY SEROUS ENDOMETRIAL CARCINOMA
  2. TAXOL (PACLITAXEL) (PACLITAXEL) [Suspect]
     Indication: PAPILLARY SEROUS ENDOMETRIAL CARCINOMA

REACTIONS (1)
  - Myelodysplastic syndrome [None]
